FAERS Safety Report 16789724 (Version 1)
Quarter: 2019Q3

REPORT INFORMATION
  Report Type: Spontaneous
  Country: US (occurrence: US)
  Receive Date: 20190910
  Receipt Date: 20190910
  Transmission Date: 20191005
  Serious: No
  Sender: FDA-Public Use
  Company Number: US-SA-2019SA251061

PATIENT
  Age: 26 Year
  Sex: Male
  Weight: 165 kg

DRUGS (8)
  1. STERILE WATER [Concomitant]
     Active Substance: WATER
     Dosage: UNK
     Route: 065
     Dates: start: 20190328
  2. HEPARIN [Concomitant]
     Active Substance: HEPARIN SODIUM
     Dosage: 100 IU/ML, UNK
     Route: 042
     Dates: start: 20190328
  3. SODIUM CHLORIDE. [Concomitant]
     Active Substance: SODIUM CHLORIDE
     Dosage: 0.9 %, UNK
     Route: 042
     Dates: start: 20190328
  4. EPINEPHRINE. [Concomitant]
     Active Substance: EPINEPHRINE
     Indication: ANAPHYLACTIC REACTION
     Dosage: 0.3 MG, PRN
     Route: 030
     Dates: start: 20190320
  5. NORMAL SALINE [Concomitant]
     Active Substance: SODIUM CHLORIDE
     Dosage: 0.9 %, UNK
     Route: 042
     Dates: start: 20190328
  6. CEREZYME [Suspect]
     Active Substance: IMIGLUCERASE
     Indication: FABRY^S DISEASE
     Dosage: UNK
     Route: 042
     Dates: start: 20190318
  7. CEREZYME [Suspect]
     Active Substance: IMIGLUCERASE
     Dosage: 4800 IU, QOW
     Route: 042
     Dates: start: 20190328
  8. DIPHENHYDRAMINE. [Concomitant]
     Active Substance: DIPHENHYDRAMINE
     Indication: ANAPHYLACTIC REACTION
     Dosage: 250 MG, PRN
     Route: 048
     Dates: start: 20190328

REACTIONS (1)
  - Arthralgia [Unknown]

NARRATIVE: CASE EVENT DATE: 2019
